FAERS Safety Report 5938002 (Version 13)
Quarter: 2012Q4

REPORT INFORMATION
  Report Type: 
  Country: US (occurrence: US)
  Receive Date: 20051208
  Receipt Date: 20121003
  Transmission Date: 20130627
  Serious: Yes (Disabling, Other)
  Sender: FDA-Public Use
  Company Number: US-ROCHE-427165

PATIENT
  Age: 18 None
  Sex: Female

DRUGS (1)
  1. ACCUTANE [Suspect]
     Indication: PRODUCT USED FOR UNKNOWN INDICATION
     Route: 048

REACTIONS (11)
  - Gastrointestinal injury [Unknown]
  - Irritable bowel syndrome [Unknown]
  - Joint injury [Unknown]
  - Arthralgia [Unknown]
  - Headache [Unknown]
  - Depression [Unknown]
  - Mental disorder [Unknown]
  - Emotional disorder [Unknown]
  - Crohn^s disease [Unknown]
  - Colitis ulcerative [Unknown]
  - Colonic fistula [Unknown]
